FAERS Safety Report 7030366-8 (Version None)
Quarter: 2010Q4

REPORT INFORMATION
  Report Type: 
  Country: None (occurrence: None)
  Receive Date: 20101001
  Receipt Date: 20100924
  Transmission Date: 20110411
  Serious: Yes (Other)
  Sender: FDA-Public Use
  Company Number: 2010SP051041

PATIENT
  Age: 58 Year
  Sex: Female

DRUGS (5)
  1. REBETOL [Suspect]
     Indication: HEPATITIS C
     Dosage: ; PO
     Route: 048
     Dates: start: 20100903
  2. INTERFERON [Suspect]
     Indication: HEPATITIS C
     Dosage: 6 MIU; ; IV
     Route: 042
     Dates: start: 20100903, end: 20100914
  3. MEVALOTIN [Concomitant]
  4. ARTIST [Concomitant]
  5. FROSEMIDE [Concomitant]

REACTIONS (1)
  - PROTEINURIA [None]
